APPROVED DRUG PRODUCT: SUMYCIN
Active Ingredient: TETRACYCLINE HYDROCHLORIDE
Strength: 250MG
Dosage Form/Route: TABLET;ORAL
Application: A061147 | Product #001
Applicant: STRIDES PHARMA INTERNATIONAL AG
Approved: Approved Prior to Jan 1, 1982 | RLD: No | RS: No | Type: RX